FAERS Safety Report 16338998 (Version 1)
Quarter: 2019Q2

REPORT INFORMATION
  Report Type: Spontaneous
  Country: US (occurrence: US)
  Receive Date: 20190521
  Receipt Date: 20190521
  Transmission Date: 20190711
  Serious: Yes (Other)
  Sender: FDA-Public Use
  Company Number: PHEH2019US020898

PATIENT
  Age: 38 Year
  Sex: Male
  Weight: 81.65 kg

DRUGS (1)
  1. GLATOPA [Suspect]
     Active Substance: GLATIRAMER ACETATE
     Indication: PRODUCT USED FOR UNKNOWN INDICATION
     Dosage: 40 MG/KG, Q3W
     Route: 042
     Dates: start: 20190513

REACTIONS (3)
  - Spinal pain [Unknown]
  - Nerve compression [Unknown]
  - Urticaria [Unknown]

NARRATIVE: CASE EVENT DATE: 20190513
